FAERS Safety Report 5673418-7 (Version None)
Quarter: 2008Q1

REPORT INFORMATION
  Report Type: 
  Country: None (occurrence: None)
  Receive Date: 20080317
  Receipt Date: 20080305
  Transmission Date: 20080703
  Serious: Yes (Other)
  Sender: FDA-Public Use
  Company Number: MEDI-0006575

PATIENT
  Age: 8 Month
  Sex: Male
  Weight: 2.3 kg

DRUGS (1)
  1. SYNAGIS [Suspect]
     Indication: ANTIVIRAL PROPHYLAXIS
     Dosage: 1 IN 1 M, INTRAMUSCULAR
     Route: 030
     Dates: start: 20071226, end: 20071226

REACTIONS (3)
  - DERMATITIS ATOPIC [None]
  - ECZEMA [None]
  - URTICARIA [None]
